FAERS Safety Report 18562561 (Version 1)
Quarter: 2020Q4

REPORT INFORMATION
  Report Type: Spontaneous
  Country: US (occurrence: US)
  Receive Date: 20201130
  Receipt Date: 20201130
  Transmission Date: 20210114
  Serious: No
  Sender: FDA-Public Use
  Company Number: US-GILEAD-2020-0505651

PATIENT
  Sex: Male

DRUGS (8)
  1. ATORVASTATIN CALCIUM. [Concomitant]
     Active Substance: ATORVASTATIN CALCIUM
  2. LOSARTAN POTASSIUM. [Concomitant]
     Active Substance: LOSARTAN POTASSIUM
  3. METFORMIN HYDROCHLORIDE. [Concomitant]
     Active Substance: METFORMIN HYDROCHLORIDE
  4. SOFOSBUVIR;VELPATASVIR [Suspect]
     Active Substance: SOFOSBUVIR\VELPATASVIR
     Indication: CHRONIC HEPATITIS C
     Dosage: 1 DOSAGE FORM, QD
     Route: 048
     Dates: start: 20201103
  5. DICLOFENAC SODIUM. [Concomitant]
     Active Substance: DICLOFENAC SODIUM
  6. PRAZOSIN HYDROCHLORIDE. [Concomitant]
     Active Substance: PRAZOSIN HYDROCHLORIDE
  7. LANTUS [Concomitant]
     Active Substance: INSULIN GLARGINE
  8. BD PEN NEEDLE/NANO 2ND GE [Concomitant]

REACTIONS (2)
  - Sleep disorder [Unknown]
  - Arthritis [Unknown]
